FAERS Safety Report 5206689-1 (Version None)
Quarter: 2007Q1

REPORT INFORMATION
  Report Type: 
  Country: None (occurrence: None)
  Receive Date: 20070109
  Receipt Date: 20061127
  Transmission Date: 20070707
  Serious: Yes (Death)
  Sender: FDA-Public Use
  Company Number: DEBAX-L-20060024

PATIENT
  Sex: Female

DRUGS (3)
  1. NAVELBINE [Suspect]
     Indication: BREAST CANCER METASTATIC
     Dosage: SEE IMAGE
  2. FLUOROURACIL [Suspect]
     Indication: BREAST CANCER METASTATIC
     Dosage: 750 MG/M2 IV
     Route: 042
  3. OXALIPLATIN [Suspect]
     Indication: BREAST CANCER METASTATIC
     Dosage: 130 MG/M2 IV
     Route: 042

REACTIONS (5)
  - ANXIETY [None]
  - CHEST PAIN [None]
  - DIARRHOEA [None]
  - NAUSEA [None]
  - VOMITING [None]
